FAERS Safety Report 9400412 (Version 4)
Quarter: 2013Q4

REPORT INFORMATION
  Report Type: Spontaneous
  Country: GB (occurrence: GB)
  Receive Date: 20130715
  Receipt Date: 20131029
  Transmission Date: 20140711
  Serious: Yes (Other)
  Sender: FDA-Public Use
  Company Number: GB-PFIZER INC-2013205755

PATIENT
  Age: 61 Year
  Sex: Female
  Weight: 166 kg

DRUGS (10)
  1. SERTRALINE HCL [Suspect]
     Indication: DEPRESSION
     Dosage: 100 MG, UNK
     Route: 048
  2. SERTRALINE HCL [Suspect]
     Dosage: 50 MG, UNK
     Route: 048
  3. OMEPRAZOLE [Concomitant]
     Dosage: UNK
  4. ESTRADIOL [Concomitant]
     Dosage: 10 MG, UNK
  5. LEVOTHYROXINE SODIUM [Concomitant]
     Dosage: UNK
  6. MONTELUKAST [Concomitant]
     Dosage: UNK
  7. SALBUTAMOL [Concomitant]
     Dosage: UNK
  8. SYMBICORT [Concomitant]
     Dosage: UNK
  9. FLIXONASE [Concomitant]
     Dosage: UNK
  10. PROCHLORPERAZINE MALEATE [Concomitant]
     Dosage: UNK

REACTIONS (4)
  - Diarrhoea [Recovering/Resolving]
  - Vomiting [Recovering/Resolving]
  - Malaise [Recovering/Resolving]
  - Anxiety [Unknown]
